FAERS Safety Report 5340451-4 (Version None)
Quarter: 2007Q2

REPORT INFORMATION
  Report Type: 
  Country: None (occurrence: None)
  Receive Date: 20070531
  Receipt Date: 20070521
  Transmission Date: 20071010
  Serious: Yes (Other)
  Sender: FDA-Public Use
  Company Number: GB-SANOFI-SYNTHELABO-A01200705488

PATIENT
  Sex: Female

DRUGS (3)
  1. PLAQUENIL [Suspect]
     Dates: start: 20061001
  2. LEVOTHYROXINE SODIUM [Concomitant]
     Dosage: UNK
  3. OMEPRAZOLE [Concomitant]
     Dosage: UNK

REACTIONS (3)
  - MUSCULAR WEAKNESS [None]
  - MYASTHENIA GRAVIS [None]
  - TREMOR [None]
